FAERS Safety Report 23727627 (Version 1)
Quarter: 2024Q2

REPORT INFORMATION
  Report Type: Spontaneous
  Country: CN (occurrence: CN)
  Receive Date: 20240410
  Receipt Date: 20240410
  Transmission Date: 20240716
  Serious: Yes (Other)
  Sender: FDA-Public Use
  Company Number: CN-BIOVITRUM-2024-CN-005432

PATIENT
  Age: 75 Year
  Sex: Female

DRUGS (1)
  1. AVATROMBOPAG [Suspect]
     Active Substance: AVATROMBOPAG
     Indication: Aplastic anaemia
     Dosage: DAILY

REACTIONS (4)
  - Sepsis [Unknown]
  - Electrolyte imbalance [Unknown]
  - Pneumonia [Unknown]
  - Off label use [Unknown]
